FAERS Safety Report 5952203-2 (Version None)
Quarter: 2008Q4

REPORT INFORMATION
  Report Type: 
  Country: None (occurrence: None)
  Receive Date: 20081113
  Receipt Date: 20081106
  Transmission Date: 20090506
  Serious: Yes (Other)
  Sender: FDA-Public Use
  Company Number: BR-JNJFOC-20081102378

PATIENT
  Sex: Male
  Weight: 70 kg

DRUGS (4)
  1. IMOSEC [Suspect]
     Route: 048
  2. IMOSEC [Suspect]
     Indication: DIARRHOEA
     Route: 048
  3. ACETYLSALICYLIC ACID SRT [Concomitant]
     Indication: CARDIAC DISORDER
     Route: 048
  4. SUSTRATE [Concomitant]
     Indication: CARDIAC DISORDER

REACTIONS (4)
  - DYSPNOEA [None]
  - HEART RATE DECREASED [None]
  - INCORRECT DOSE ADMINISTERED [None]
  - MALAISE [None]
